FAERS Safety Report 9123956 (Version 1)
Quarter: 2013Q1

REPORT INFORMATION
  Report Type: Spontaneous
  Country: JP (occurrence: JP)
  Receive Date: 20130227
  Receipt Date: 20130227
  Transmission Date: 20140127
  Serious: Yes (Other)
  Sender: FDA-Public Use
  Company Number: JP-EISAI INC-E2090-02516-SPO-JP

PATIENT
  Age: 67 Year
  Sex: Female

DRUGS (21)
  1. EXCEGRAN [Suspect]
     Indication: EPILEPSY
     Dosage: 300 MG DAILY
     Route: 048
     Dates: start: 20101124, end: 20101214
  2. EXCEGRAN [Suspect]
     Dosage: 100 MG DAILY
     Route: 048
     Dates: start: 20101215
  3. ANCARON [Suspect]
     Indication: ATRIAL FIBRILLATION
     Dosage: UNKNOWN
     Route: 048
     Dates: start: 201012
  4. ANCARON [Suspect]
     Indication: VENTRICULAR TACHYCARDIA
  5. ALEVIATIN [Concomitant]
     Indication: STATUS EPILEPTICUS
     Dosage: 198 MG DAILY
     Route: 048
     Dates: start: 20101220
  6. FRANDOL [Concomitant]
     Indication: ANGINA PECTORIS
     Dosage: 40 MG DAILY
  7. ALDACTONE A [Concomitant]
     Indication: CARDIAC FAILURE
     Dosage: 25 MG DAILY
     Route: 048
  8. ARTIST [Concomitant]
     Indication: CARDIAC FAILURE
     Dosage: 1.25 MG DAILY
  9. ARTIST [Concomitant]
     Indication: HYPERTENSION
  10. BAYASPIRIN [Concomitant]
     Indication: CEREBRAL INFARCTION
     Dosage: 100 MG DAILY
  11. BAYASPIRIN [Concomitant]
     Indication: ANGINA PECTORIS
  12. PLETAAL [Concomitant]
     Indication: CEREBRAL INFARCTION
     Dosage: 400 MG DAILY
  13. MINOPEN [Concomitant]
     Indication: BRONCHITIS CHRONIC
     Dosage: 400 MG DAILY
  14. MINOPEN [Concomitant]
     Indication: PNEUMONIA
  15. DEPAKENE [Concomitant]
     Indication: EPILEPSY
     Dosage: 798 MG DAILY
  16. SELBEX [Concomitant]
     Indication: GASTRIC ULCER
     Dosage: 150 MG DAILY
  17. MIYA-BM [Concomitant]
     Indication: FUNCTIONAL GASTROINTESTINAL DISORDER
     Dosage: 60 MG DAILY
  18. GASCON [Concomitant]
     Indication: FUNCTIONAL GASTROINTESTINAL DISORDER
     Dosage: 120 MG DAILY
  19. CRESTOR [Concomitant]
     Indication: DYSLIPIDAEMIA
     Dosage: 2.5 MG DAILY
  20. LUVOX [Concomitant]
     Indication: DEPRESSION
     Dosage: 25 MG DAILY
  21. SUNRYTHM [Concomitant]
     Indication: ATRIAL FIBRILLATION
     Route: 048
     Dates: start: 20101125, end: 201012

REACTIONS (1)
  - Renal failure [Recovering/Resolving]
